FAERS Safety Report 21735558 (Version 1)
Quarter: 2022Q4

REPORT INFORMATION
  Report Type: Spontaneous
  Country: US (occurrence: None)
  Receive Date: 20221214
  Receipt Date: 20221214
  Transmission Date: 20230112
  Serious: Yes (Other)
  Sender: FDA-Public Use
  Company Number: None

PATIENT
  Age: 25 Year
  Sex: Male

DRUGS (1)
  1. AMMONIA INHALANTS [Suspect]
     Active Substance: AMMONIA
     Dates: start: 20221202

REACTIONS (6)
  - Adverse drug reaction [None]
  - Vomiting [None]
  - Diarrhoea [None]
  - Anxiety [None]
  - Tremor [None]
  - Migraine [None]

NARRATIVE: CASE EVENT DATE: 20221202
